FAERS Safety Report 16674517 (Version 1)
Quarter: 2019Q3

REPORT INFORMATION
  Report Type: Spontaneous
  Country: DE (occurrence: DE)
  Receive Date: 20190806
  Receipt Date: 20190806
  Transmission Date: 20191004
  Serious: Yes (Other)
  Sender: FDA-Public Use
  Company Number: DE-MYLANLABS-2019M1073288

PATIENT

DRUGS (3)
  1. TRAMADOL. [Suspect]
     Active Substance: TRAMADOL
     Indication: PRODUCT USED FOR UNKNOWN INDICATION
     Dosage: 4 DOSAGE FORM, QD
     Dates: start: 2006
  2. TRAMADOL. [Suspect]
     Active Substance: TRAMADOL
     Dosage: 2 DF, 4/DAY
     Dates: start: 2012
  3. TRAMADOL. [Suspect]
     Active Substance: TRAMADOL
     Dosage: 2 DF, 2/DAY

REACTIONS (3)
  - Social avoidant behaviour [Unknown]
  - Irritability [Unknown]
  - Drug dependence [Unknown]
